FAERS Safety Report 11206200 (Version 1)
Quarter: 2015Q2

REPORT INFORMATION
  Report Type: Spontaneous
  Country: US (occurrence: None)
  Receive Date: 20150618
  Receipt Date: 20150618
  Transmission Date: 20150821
  Serious: Yes (Life-Threatening)
  Sender: FDA-Public Use
  Company Number: None

PATIENT
  Age: 32 Year
  Sex: Female
  Weight: 108.86 kg

DRUGS (8)
  1. TORADOL [Concomitant]
     Active Substance: KETOROLAC TROMETHAMINE
  2. MAXALT [Concomitant]
     Active Substance: RIZATRIPTAN BENZOATE
  3. PIROXICAM WITH PRN PHENERGAN [Concomitant]
  4. HYDROCODONE [Concomitant]
     Active Substance: HYDROCODONE
  5. GLUCOSAMINE CHONDROITIN [Concomitant]
     Active Substance: CHONDROITIN SULFATE (BOVINE)\GLUCOSAMINE HYDROCHLORIDE
  6. CHANTIX [Suspect]
     Active Substance: VARENICLINE TARTRATE
     Indication: SMOKING CESSATION THERAPY
  7. NORTRIPTYLINE [Concomitant]
     Active Substance: NORTRIPTYLINE
  8. OMEPRAZOLE. [Concomitant]
     Active Substance: OMEPRAZOLE

REACTIONS (1)
  - Suicidal ideation [None]
